FAERS Safety Report 21020946 (Version 1)
Quarter: 2022Q2

REPORT INFORMATION
  Report Type: Spontaneous
  Country: US (occurrence: US)
  Receive Date: 20220629
  Receipt Date: 20220629
  Transmission Date: 20220721
  Serious: No
  Sender: FDA-Public Use
  Company Number: US-AIMMUNE THERAPEUTICS, INC.-2022AIMT00471

PATIENT

DRUGS (4)
  1. PALFORZIA [Suspect]
     Active Substance: PEANUT
     Indication: Food allergy
     Dosage: 120 MG, 1X/DAY
     Route: 048
     Dates: start: 20220531, end: 20220611
  2. PALFORZIA [Suspect]
     Active Substance: PEANUT
     Dosage: 120 MG, ONCE, LAST DOSE PRIOR TO EVENTS
     Route: 048
     Dates: start: 20220611, end: 20220611
  3. PALFORZIA [Suspect]
     Active Substance: PEANUT
     Dosage: 60 MG, ONCE, DOSE REDUCED
     Route: 048
     Dates: start: 20220612, end: 20220612
  4. PALFORZIA [Suspect]
     Active Substance: PEANUT
     Dosage: 60 MG, ONCE, RE-UPDOSED
     Route: 048
     Dates: start: 20220613

REACTIONS (5)
  - Crying [Recovered/Resolved]
  - Lip swelling [Recovered/Resolved]
  - Cyanosis [Recovered/Resolved]
  - Drooling [Recovered/Resolved]
  - Cough [Recovered/Resolved]

NARRATIVE: CASE EVENT DATE: 20220611
